FAERS Safety Report 5096334-0 (Version None)
Quarter: 2006Q3

REPORT INFORMATION
  Report Type: 
  Country: None (occurrence: None)
  Receive Date: 20060905
  Receipt Date: 20060703
  Transmission Date: 20061208
  Serious: Yes (Hospitalization)
  Sender: FDA-Public Use
  Company Number: 2006CG01147

PATIENT
  Age: 78 Year
  Sex: Male
  Weight: 70 kg

DRUGS (8)
  1. HYTACAND [Suspect]
     Dosage: 16 + 12.5 MG ONCE DAILY
     Route: 048
  2. ALDACTONE [Interacting]
     Route: 048
     Dates: start: 19920101, end: 20060409
  3. ATENOLOL [Concomitant]
     Route: 048
     Dates: start: 19920101
  4. OMEPRAZOLE [Concomitant]
     Route: 048
     Dates: start: 19920101
  5. ASPIRIN [Concomitant]
     Route: 048
     Dates: start: 19920101, end: 20060409
  6. CREON [Concomitant]
     Route: 048
     Dates: start: 20040101, end: 20060409
  7. INSULIN [Concomitant]
     Dates: start: 20040101
  8. METFORMIN [Concomitant]
     Dates: start: 20040101

REACTIONS (12)
  - ACUTE MYOCARDIAL INFARCTION [None]
  - ATRIAL FIBRILLATION [None]
  - BLOOD CALCIUM DECREASED [None]
  - BUNDLE BRANCH BLOCK RIGHT [None]
  - DIABETES MELLITUS [None]
  - DRUG INTERACTION [None]
  - ELECTROCARDIOGRAM REPOLARISATION ABNORMALITY [None]
  - FALL [None]
  - FEMORAL NECK FRACTURE [None]
  - HYPERKALAEMIA [None]
  - RENAL FAILURE [None]
  - SUPRAVENTRICULAR EXTRASYSTOLES [None]
